FAERS Safety Report 15158111 (Version 1)
Quarter: 2018Q3

REPORT INFORMATION
  Report Type: Spontaneous
  Country: US (occurrence: US)
  Receive Date: 20180718
  Receipt Date: 20180718
  Transmission Date: 20181010
  Serious: No
  Sender: FDA-Public Use
  Company Number: US-PFIZER INC-2018287322

PATIENT
  Age: 62 Year
  Sex: Male
  Weight: 63.5 kg

DRUGS (2)
  1. PRAVASTATIN. [Concomitant]
     Active Substance: PRAVASTATIN
     Dosage: UNK
  2. EUCRISA [Suspect]
     Active Substance: CRISABOROLE
     Indication: LICHEN PLANUS
     Dosage: UNK
     Dates: start: 201710

REACTIONS (4)
  - Application site pruritus [Unknown]
  - Product use in unapproved indication [Unknown]
  - Product quality issue [Unknown]
  - Skin burning sensation [Unknown]
